FAERS Safety Report 9310211 (Version 1)
Quarter: 2013Q2

REPORT INFORMATION
  Report Type: Spontaneous
  Country: DE (occurrence: DE)
  Receive Date: 20130527
  Receipt Date: 20130527
  Transmission Date: 20140414
  Serious: Yes (Hospitalization)
  Sender: FDA-Public Use
  Company Number: PHHY2013DE052444

PATIENT
  Age: 54 Year
  Sex: Female

DRUGS (1)
  1. FEMARA [Suspect]
     Indication: BREAST CANCER
     Dosage: UNK UKN, UNK
     Route: 048

REACTIONS (2)
  - Maculopathy [Recovered/Resolved]
  - Macular oedema [Recovered/Resolved]
